FAERS Safety Report 5960903-3 (Version None)
Quarter: 2008Q4

REPORT INFORMATION
  Report Type: 
  Country: None (occurrence: None)
  Receive Date: 20081121
  Receipt Date: 20080128
  Transmission Date: 20090506
  Serious: Yes (Hospitalization)
  Sender: FDA-Public Use
  Company Number: DE-JNJFOC-20040406341

PATIENT
  Age: 66 Year
  Sex: Female
  Weight: 43 kg

DRUGS (8)
  1. DOXORUBICIN HCL [Suspect]
     Route: 042
  2. DOXORUBICIN HCL [Suspect]
     Dosage: X 2 CYCLES
     Route: 042
  3. DOXORUBICIN HCL [Suspect]
     Indication: ENDOMETRIAL CANCER
     Route: 042
  4. CARBOPLATIN [Suspect]
     Route: 042
  5. CARBOPLATIN [Suspect]
     Route: 042
  6. CARBOPLATIN [Suspect]
     Indication: ENDOMETRIAL CANCER
     Route: 042
  7. FORTECORTIN [Concomitant]
     Indication: PROPHYLACTIC CHEMOTHERAPY
     Dosage: X 3 DOSES
     Route: 042
  8. GRANISETRON [Concomitant]
     Indication: PROPHYLAXIS OF NAUSEA AND VOMITING
     Dosage: X 3 DOSES
     Route: 042

REACTIONS (1)
  - HEPATIC PAIN [None]
